FAERS Safety Report 24194867 (Version 8)
Quarter: 2025Q1

REPORT INFORMATION
  Report Type: Spontaneous
  Country: US (occurrence: US)
  Receive Date: 20240809
  Receipt Date: 20250108
  Transmission Date: 20250409
  Serious: Yes (Other)
  Sender: ASTELLAS
  Company Number: US-ASTELLAS-2024US017708

PATIENT
  Age: 82 Year
  Sex: Female

DRUGS (2)
  1. IZERVAY [Suspect]
     Active Substance: AVACINCAPTAD PEGOL SODIUM
     Indication: Macular degeneration
     Dosage: IN BOTH EYES, WEDNESDAY AND GET ONE IN MY RIGHT EYE AND THEN I GO THE FOLLOWING WEDNESDAY AND GET ON
     Dates: start: 202309, end: 202309
  2. IZERVAY [Suspect]
     Active Substance: AVACINCAPTAD PEGOL SODIUM
     Dosage: IN BOTH EYES, WEDNESDAY AND GET ONE IN MY RIGHT EYE AND THEN I GO THE FOLLOWING WEDNESDAY AND GET ON
     Dates: start: 202311, end: 202311

REACTIONS (8)
  - Blindness [Not Recovered/Not Resolved]
  - Vision blurred [Not Recovered/Not Resolved]
  - Feeling abnormal [Unknown]
  - Tremor [Unknown]
  - Photopsia [Not Recovered/Not Resolved]
  - Eye pain [Not Recovered/Not Resolved]
  - Condition aggravated [Not Recovered/Not Resolved]
  - Irritability [Unknown]

NARRATIVE: CASE EVENT DATE: 20240101
